FAERS Safety Report 14554246 (Version 1)
Quarter: 2018Q1

REPORT INFORMATION
  Report Type: Spontaneous
  Country: US (occurrence: US)
  Receive Date: 20180208
  Receipt Date: 20180208
  Transmission Date: 20180509
  Serious: Yes (Hospitalization)
  Sender: FDA-Public Use
  Company Number: None

PATIENT
  Age: 60 Year
  Sex: Male
  Weight: 76.4 kg

DRUGS (1)
  1. NALTREXONE [Suspect]
     Active Substance: NALTREXONE
     Indication: ALCOHOLISM
     Route: 048
     Dates: start: 20150522, end: 20150522

REACTIONS (9)
  - Feeling cold [None]
  - Asthenia [None]
  - Feeling drunk [None]
  - Orthostatic hypotension [None]
  - Therapy cessation [None]
  - Hot flush [None]
  - Dizziness [None]
  - Ataxia [None]
  - Anxiety [None]

NARRATIVE: CASE EVENT DATE: 20150522
